FAERS Safety Report 16153476 (Version 1)
Quarter: 2019Q2

REPORT INFORMATION
  Report Type: Spontaneous
  Country: CN (occurrence: CN)
  Receive Date: 20190403
  Receipt Date: 20190403
  Transmission Date: 20190711
  Serious: Yes (Other)
  Sender: FDA-Public Use
  Company Number: CN-BAXTER-2019BAX006621

PATIENT
  Age: 61 Year
  Sex: Male

DRUGS (6)
  1. 0.9% SODIUM CHLORIDE INJECTION [Suspect]
     Active Substance: SODIUM CHLORIDE
     Indication: MEDICATION DILUTION
     Dosage: CYCLOPHOSPHAMIDE FOR INJECTION 1.2 G + 0.9% NS 40 ML
     Route: 041
     Dates: start: 20181225, end: 20181225
  2. 0.9% SODIUM CHLORIDE INJECTION [Suspect]
     Active Substance: SODIUM CHLORIDE
     Dosage: DOXORUBICIN HYDROCHLORIDE FOR INJECTION 80 MG + 0.9% NS 40 ML
     Route: 041
     Dates: start: 20181225, end: 20181225
  3. VINCRISTINE SULFATE. [Suspect]
     Active Substance: VINCRISTINE SULFATE
     Indication: DIFFUSE LARGE B-CELL LYMPHOMA STAGE III
     Dosage: VINCRISTINE SULFATE FOR INJECTION 2 MG +0.9% NS 40 ML
     Route: 041
     Dates: start: 20181225, end: 20181225
  4. ENDOXAN [Suspect]
     Active Substance: CYCLOPHOSPHAMIDE
     Indication: DIFFUSE LARGE B-CELL LYMPHOMA STAGE III
     Dosage: DOSAGE FORM: INJECTION, CYCLOPHOSPHAMIDE FOR INJECTION 1.2 G + 0.9% NS 40 ML
     Route: 041
     Dates: start: 20181225, end: 20181225
  5. DOXORUBICIN HYDROCHLORIDE. [Suspect]
     Active Substance: DOXORUBICIN HYDROCHLORIDE
     Indication: DIFFUSE LARGE B-CELL LYMPHOMA STAGE III
     Dosage: DOXORUBICIN HYDROCHLORIDE FOR INJECTION 80 MG + 0.9% NS 40 ML
     Route: 041
     Dates: start: 20181225, end: 20181225
  6. 0.9% SODIUM CHLORIDE INJECTION [Suspect]
     Active Substance: SODIUM CHLORIDE
     Dosage: VINCRISTINE SULFATE FOR INJECTION 2 MG +0.9% NS 40 ML
     Route: 041
     Dates: start: 20181225, end: 20181225

REACTIONS (1)
  - White blood cell count decreased [Recovered/Resolved]

NARRATIVE: CASE EVENT DATE: 20190103
